FAERS Safety Report 12571483 (Version 1)
Quarter: 2016Q3

REPORT INFORMATION
  Report Type: Spontaneous
  Country: FR (occurrence: FR)
  Receive Date: 20160719
  Receipt Date: 20160719
  Transmission Date: 20161109
  Serious: Yes (Death, Other)
  Sender: FDA-Public Use
  Company Number: FR-AMGEN-FRASP2016090728

PATIENT
  Age: 83 Year
  Sex: Male

DRUGS (2)
  1. CORDARONE [Suspect]
     Active Substance: AMIODARONE HYDROCHLORIDE
     Indication: ATRIAL FIBRILLATION
     Dosage: 200 MG, TID
     Route: 048
     Dates: start: 201606, end: 20160616
  2. PROLIA [Suspect]
     Active Substance: DENOSUMAB
     Indication: OSTEOPOROSIS
     Dosage: 60 MG, QD
     Route: 058
     Dates: start: 20160607

REACTIONS (6)
  - Bleeding time prolonged [Unknown]
  - Petechiae [Unknown]
  - Purpura [Unknown]
  - Cardiorenal syndrome [Fatal]
  - Pulmonary oedema [Fatal]
  - Prothrombin time shortened [Unknown]

NARRATIVE: CASE EVENT DATE: 20160616
